FAERS Safety Report 16840155 (Version 1)
Quarter: 2019Q3

REPORT INFORMATION
  Report Type: Report from Study
  Country: GB (occurrence: GB)
  Receive Date: 20190923
  Receipt Date: 20190923
  Transmission Date: 20191005
  Serious: Yes (Hospitalization)
  Sender: FDA-Public Use
  Company Number: GB-PFIZER INC-2019395696

PATIENT
  Weight: 23 kg

DRUGS (12)
  1. LEVOMEPROMAZINE [Concomitant]
     Active Substance: LEVOMEPROMAZINE
     Indication: ANTIEMETIC SUPPORTIVE CARE
     Dosage: 6.25 MG, DAILY
     Dates: start: 20190828, end: 20190902
  2. CHLORPHENAMINE [Concomitant]
     Active Substance: CHLORPHENIRAMINE MALEATE
     Indication: PREMEDICATION
     Dosage: 2 MG, DAILY
     Dates: start: 20190827, end: 20190827
  3. MITOXANTRONE HCL [Suspect]
     Active Substance: MITOXANTRONE HYDROCHLORIDE
     Dosage: 12 MG/M2, 1X/DAY
     Route: 042
     Dates: start: 20190823, end: 20190826
  4. OMNIPAQUE [Concomitant]
     Active Substance: IOHEXOL
     Indication: COMPUTERISED TOMOGRAM
     Dosage: 45 ML, DAILY
     Dates: start: 20190902, end: 20190902
  5. ALLOPURINOL. [Concomitant]
     Active Substance: ALLOPURINOL
     Indication: PROPHYLAXIS
     Dosage: 100 MG/M2, 3X/DAY
     Dates: start: 20190820, end: 20190827
  6. PARACETAMOL [Concomitant]
     Active Substance: ACETAMINOPHEN
     Indication: PREMEDICATION
     Dosage: 15 MG/KG, DAILY
     Dates: start: 20190827, end: 20190827
  7. PIPERACILLIN AND TAZOBACTAM [Concomitant]
     Active Substance: PIPERACILLIN SODIUM\TAZOBACTAM SODIUM
     Indication: ANTIBIOTIC THERAPY
     Dosage: 90 MG/KG, 1X/DAY
     Dates: start: 20190827, end: 20190827
  8. GEMTUZUMAB OZOGAMICIN [Suspect]
     Active Substance: GEMTUZUMAB OZOGAMICIN
     Dosage: 2.7 MG, UNK
     Route: 042
     Dates: start: 20190827, end: 20190827
  9. ITRACONAZOLE. [Concomitant]
     Active Substance: ITRACONAZOLE
     Indication: PROPHYLAXIS
     Dosage: 2.5 MG/KG, 2X/DAY
     Dates: start: 20190902
  10. POTASSIUM [Concomitant]
     Active Substance: POTASSIUM
     Indication: HYPOKALAEMIA
     Dosage: 0.5 MMOL/KG, DAILY
     Dates: start: 20190831, end: 20190831
  11. COTRIMOXAZOLE [Concomitant]
     Active Substance: SULFAMETHOXAZOLE\TRIMETHOPRIM
     Indication: PROPHYLAXIS
     Dosage: 360 MG, BD SAT+SUN ONLY
     Dates: start: 20190831
  12. CYTARABINE. [Concomitant]
     Active Substance: CYTARABINE
     Dosage: 90 MG, 2X/DAY
     Dates: start: 20190823, end: 20190902

REACTIONS (1)
  - Febrile neutropenia [Not Recovered/Not Resolved]

NARRATIVE: CASE EVENT DATE: 20190910
